FAERS Safety Report 7377392-7 (Version None)
Quarter: 2011Q1

REPORT INFORMATION
  Report Type: 
  Country: None (occurrence: None)
  Receive Date: 20110328
  Receipt Date: 20110325
  Transmission Date: 20110831
  Serious: No
  Sender: FDA-Public Use
  Company Number: US-PFIZER INC-2010137583

PATIENT
  Age: 80 Year
  Sex: Female

DRUGS (3)
  1. XALATAN [Suspect]
     Indication: GLAUCOMA
     Dosage: UNK
     Dates: start: 20091113
  2. COSOPT [Concomitant]
     Dosage: UNK
     Dates: start: 20101001
  3. XALATAN [Suspect]
     Indication: FOREIGN BODY SENSATION IN EYES

REACTIONS (1)
  - CORNEAL LESION [None]
